FAERS Safety Report 19839646 (Version 1)
Quarter: 2021Q3

REPORT INFORMATION
  Report Type: Spontaneous
  Country: US (occurrence: US)
  Receive Date: 20210916
  Receipt Date: 20210916
  Transmission Date: 20211014
  Serious: Yes (Other)
  Sender: FDA-Public Use
  Company Number: US-BSC-2021000004

PATIENT
  Sex: Male

DRUGS (1)
  1. VARITHENA [Suspect]
     Active Substance: POLIDOCANOL

REACTIONS (2)
  - Wrong technique in product usage process [Unknown]
  - Peripheral vein thrombus extension [Unknown]

NARRATIVE: CASE EVENT DATE: 20210112
